FAERS Safety Report 5776240-6 (Version None)
Quarter: 2008Q2

REPORT INFORMATION
  Report Type: 
  Country: None (occurrence: None)
  Receive Date: 20080616
  Receipt Date: 20080604
  Transmission Date: 20081010
  Serious: Yes (Life-Threatening, Hospitalization, Other)
  Sender: FDA-Public Use
  Company Number: 163-21880-08050077

PATIENT
  Age: 61 Year
  Sex: Female
  Weight: 59.2 kg

DRUGS (10)
  1. REVLIMID [Suspect]
     Indication: MULTIPLE MYELOMA
     Dosage: 10 MG, QD FOR 3 MONTHS, ORAL; 10 MG, QD FOR 3 MONTHS, ORAL
     Route: 048
     Dates: start: 20080219, end: 20080326
  2. REVLIMID [Suspect]
     Indication: MULTIPLE MYELOMA
     Dosage: 10 MG, QD FOR 3 MONTHS, ORAL; 10 MG, QD FOR 3 MONTHS, ORAL
     Route: 048
     Dates: start: 20070607
  3. ACYCLOVIR [Suspect]
  4. ASPIRIN [Concomitant]
  5. LIPITOR [Concomitant]
  6. LORAZEPAM [Concomitant]
  7. MULTIVITAMIN [Concomitant]
  8. LEVETIRACETAM [Concomitant]
  9. DEXAMETHASONE [Concomitant]
  10. PLACEBO [Suspect]

REACTIONS (5)
  - ENCEPHALITIS [None]
  - HALLUCINATION, VISUAL [None]
  - HEMIANOPIA [None]
  - LYMPHOPENIA [None]
  - PHOTOPSIA [None]
